FAERS Safety Report 7723010-5 (Version None)
Quarter: 2011Q3

REPORT INFORMATION
  Report Type: 
  Country: None (occurrence: None)
  Receive Date: 20110901
  Receipt Date: 20110126
  Transmission Date: 20111222
  Serious: No
  Sender: FDA-Public Use
  Company Number: US-BAYER-2011-010161

PATIENT
  Age: 38 Year
  Sex: Female

DRUGS (3)
  1. PILL [Concomitant]
     Indication: AMENORRHOEA
  2. PILL [Concomitant]
     Indication: MENSTRUAL CYCLE MANAGEMENT
  3. MIRENA [Suspect]
     Indication: CONTRACEPTION
     Dosage: 20 ?G/D, CONT
     Route: 015
     Dates: start: 20101223

REACTIONS (3)
  - PILOERECTION [None]
  - AMENORRHOEA [None]
  - NERVOUSNESS [None]
